FAERS Safety Report 11277789 (Version 3)
Quarter: 2016Q3

REPORT INFORMATION
  Report Type: Report from Study
  Country: US (occurrence: US)
  Receive Date: 20150716
  Receipt Date: 20160805
  Transmission Date: 20161109
  Serious: Yes (Hospitalization, Other)
  Sender: FDA-Public Use
  Company Number: US-CELGENEUS-USA-2015070900

PATIENT
  Age: 67 Year
  Sex: Female
  Weight: 115 kg

DRUGS (2)
  1. DECADRON [Suspect]
     Active Substance: DEXAMETHASONE
     Indication: PLASMA CELL MYELOMA
     Dosage: 4 MILLIGRAM
     Route: 048
     Dates: start: 20150121, end: 20150329
  2. POMALYST [Suspect]
     Active Substance: POMALIDOMIDE
     Indication: PLASMA CELL MYELOMA
     Dosage: 4 MILLIGRAM
     Route: 048
     Dates: start: 20150121, end: 20150329

REACTIONS (2)
  - Acute kidney injury [Recovered/Resolved]
  - Failure to thrive [Recovered/Resolved]

NARRATIVE: CASE EVENT DATE: 20150329
